FAERS Safety Report 15018635 (Version 1)
Quarter: 2018Q2

REPORT INFORMATION
  Report Type: Spontaneous
  Country: US (occurrence: US)
  Receive Date: 20180523
  Receipt Date: 20180523
  Transmission Date: 20180711
  Serious: No
  Sender: FDA-Public Use
  Company Number: None

PATIENT
  Age: 67 Year
  Sex: Male

DRUGS (1)
  1. TEMOZOLOMIDE 140MG CAP [Suspect]
     Active Substance: TEMOZOLOMIDE

REACTIONS (4)
  - Fatigue [None]
  - Speech disorder [None]
  - Cognitive disorder [None]
  - Nausea [None]

NARRATIVE: CASE EVENT DATE: 20180522
